FAERS Safety Report 8775988 (Version 3)
Quarter: 2012Q4

REPORT INFORMATION
  Report Type: 
  Country: US (occurrence: US)
  Receive Date: 20120910
  Receipt Date: 20121016
  Transmission Date: 20130627
  Serious: Yes (Hospitalization, Other)
  Sender: FDA-Public Use
  Company Number: US-009507513-1106USA02741

PATIENT

DRUGS (12)
  1. FOSAMAX [Suspect]
     Indication: OSTEOPOROSIS
     Dosage: 10 mg, UNK
     Route: 048
     Dates: start: 1999, end: 200103
  2. FOSAMAX [Suspect]
     Indication: OSTEOPENIA
     Dosage: 70 mg, UNK
     Route: 048
     Dates: start: 200103, end: 200704
  3. FOSAMAX D [Suspect]
     Indication: OSTEOPOROSIS
     Dosage: 70 mg, UNK
     Route: 048
     Dates: start: 200704, end: 200712
  4. FOSAMAX D [Suspect]
     Indication: OSTEOPENIA
  5. FOSAMAX [Suspect]
     Indication: OSTEOPOROSIS
     Dosage: 70 mg, UNK
     Route: 048
     Dates: start: 200712, end: 20091231
  6. FOSAMAX [Suspect]
     Indication: OSTEOPENIA
  7. ALENDRONATE SODIUM [Suspect]
  8. HORMONES (UNSPECIFIED) [Concomitant]
     Dosage: UNK
     Dates: start: 19991112, end: 200512
  9. FORTEO [Concomitant]
     Dosage: UNK
     Dates: start: 201001, end: 201201
  10. CALCIUM (UNSPECIFIED) [Concomitant]
  11. VITAMIN D (UNSPECIFIED) [Concomitant]
  12. LORATADINE [Concomitant]

REACTIONS (21)
  - Femur fracture [Unknown]
  - Femur fracture [Unknown]
  - Open reduction of fracture [Unknown]
  - Open reduction of fracture [Unknown]
  - Device failure [Unknown]
  - Fracture delayed union [Unknown]
  - Medical device removal [Unknown]
  - Medical device removal [Unknown]
  - Medical device change [Unknown]
  - Fracture nonunion [Unknown]
  - Impaired healing [Unknown]
  - Vitamin D deficiency [Unknown]
  - Adverse event [Unknown]
  - Adverse event [Unknown]
  - Anxiety [Unknown]
  - Depression [Unknown]
  - Hypertonic bladder [Unknown]
  - Infection [Unknown]
  - Pain [Unknown]
  - Gastrooesophageal reflux disease [Unknown]
  - Limb discomfort [Unknown]
